FAERS Safety Report 5068903-5 (Version None)
Quarter: 2006Q3

REPORT INFORMATION
  Report Type: 
  Country: None (occurrence: None)
  Receive Date: 20060802
  Receipt Date: 20060531
  Transmission Date: 20061208
  Serious: Yes (Hospitalization)
  Sender: FDA-Public Use
  Company Number: US-BRISTOL-MYERS SQUIBB COMPANY-13396452

PATIENT
  Age: 41 Year
  Sex: Female
  Weight: 50 kg

DRUGS (4)
  1. COUMADIN [Suspect]
     Indication: CEREBRAL THROMBOSIS
     Dates: start: 20060501
  2. WARFARIN SODIUM [Suspect]
     Indication: CEREBRAL THROMBOSIS
     Dates: start: 20060515, end: 20060501
  3. DILANTIN [Suspect]
     Dates: end: 20060501
  4. KEPPRA [Concomitant]
     Dates: start: 20060524

REACTIONS (4)
  - BURNING SENSATION [None]
  - MUSCLE SPASMS [None]
  - PRURITUS [None]
  - RASH [None]
